FAERS Safety Report 8785094 (Version 1)
Quarter: 2012Q4

REPORT INFORMATION
  Report Type: 
  Country: GB (occurrence: GB)
  Receive Date: 20120914
  Receipt Date: 20120914
  Transmission Date: 20130627
  Serious: Yes (Other)
  Sender: FDA-Public Use
  Company Number: GB-ROXANE LABORATORIES, INC.-2012-RO-01831RO

PATIENT
  Age: 56 Year
  Sex: Female

DRUGS (1)
  1. MERCAPTOPURINE [Suspect]
     Indication: COLITIS ULCERATIVE
     Dates: start: 2006, end: 2011

REACTIONS (2)
  - Pulmonary granuloma [Recovered/Resolved]
  - Epstein-Barr virus antibody positive [Unknown]
